FAERS Safety Report 7210539-1 (Version None)
Quarter: 2010Q4

REPORT INFORMATION
  Report Type: 
  Country: None (occurrence: None)
  Receive Date: 20101126
  Receipt Date: 20100917
  Transmission Date: 20110411
  Serious: No
  Sender: FDA-Public Use
  Company Number: 315192

PATIENT
  Age: 63 Year
  Sex: Female

DRUGS (4)
  1. VICTOZA [Suspect]
     Indication: GLUCOSE TOLERANCE IMPAIRED
     Dosage: SUBCUTANEOUS
     Route: 058
  2. VICTOZA [Suspect]
     Indication: OBESITY
     Dosage: SUBCUTANEOUS
     Route: 058
  3. L-CARNITINE /00878601/ (LEVOCARNITINE) [Concomitant]
  4. METFORMIN (METFORMIN HYDROCHLORIDE) [Concomitant]

REACTIONS (3)
  - INJECTION SITE HAEMORRHAGE [None]
  - TACHYCARDIA [None]
  - WRONG TECHNIQUE IN DRUG USAGE PROCESS [None]
